FAERS Safety Report 10164269 (Version 1)
Quarter: 2014Q2

REPORT INFORMATION
  Report Type: Spontaneous
  Country: US (occurrence: US)
  Receive Date: 20140510
  Receipt Date: 20140510
  Transmission Date: 20141212
  Serious: No
  Sender: FDA-Public Use
  Company Number: US-BRISTOL-MYERS SQUIBB COMPANY-20087995

PATIENT
  Age: 86 Year
  Sex: Male
  Weight: 92.51 kg

DRUGS (3)
  1. BYETTA [Suspect]
     Route: 058
     Dates: start: 20131125
  2. ACTOS [Suspect]
     Dates: end: 2014
  3. GLIMEPIRIDE [Suspect]
     Dosage: REDUCED TO 1 DOSE A DAY AND WENT BACK TO TWICE DAILY

REACTIONS (2)
  - Blood glucose increased [Not Recovered/Not Resolved]
  - Decreased appetite [Not Recovered/Not Resolved]
